FAERS Safety Report 7898484-X (Version None)
Quarter: 2011Q4

REPORT INFORMATION
  Report Type: 
  Country: None (occurrence: None)
  Receive Date: 20111103
  Receipt Date: 20111027
  Transmission Date: 20120403
  Serious: Yes (Death)
  Sender: FDA-Public Use
  Company Number: GER/UKI/11/0021731

PATIENT
  Age: 65 Year
  Sex: Male

DRUGS (6)
  1. ATORVASTATIN CALCIUM [Concomitant]
  2. TEMAZEPAM [Concomitant]
  3. METFORMIN HCL [Suspect]
     Indication: PRODUCT USED FOR UNKNOWN INDICATION
     Dosage: 850 MG, 3 IN 1 D
  4. GLICLAZIDE (GLICLAZIDE) [Concomitant]
  5. VALPROATE SODIUM [Suspect]
     Indication: EPILEPSY
     Dosage: 200 MG, 1 IN 1 D
  6. OMEPRAZOLE [Suspect]
     Indication: PRODUCT USED FOR UNKNOWN INDICATION
     Dosage: 20 MG, 1 IN 1

REACTIONS (5)
  - THINKING ABNORMAL [None]
  - EXSANGUINATION [None]
  - LEG AMPUTATION [None]
  - INTENTIONAL SELF-INJURY [None]
  - PSYCHOTIC DISORDER [None]
